FAERS Safety Report 10300852 (Version 1)
Quarter: 2014Q3

REPORT INFORMATION
  Report Type: Report from Study
  Country: BR (occurrence: BR)
  Receive Date: 20140714
  Receipt Date: 20140714
  Transmission Date: 20150326
  Serious: Yes (Other)
  Sender: FDA-Public Use
  Company Number: BR-ROCHE-1433276

PATIENT
  Sex: Female
  Weight: 84 kg

DRUGS (7)
  1. NPH INSULIN [Concomitant]
     Active Substance: INSULIN BEEF
  2. SIMVASTATIN. [Concomitant]
     Active Substance: SIMVASTATIN
  3. METFORMIN [Concomitant]
     Active Substance: METFORMIN HYDROCHLORIDE
     Route: 065
  4. OMEGA 3 [Concomitant]
     Active Substance: OMEGA-3 FATTY ACIDS
  5. ATENOLOL. [Concomitant]
     Active Substance: ATENOLOL
  6. LOSARTAN [Concomitant]
     Active Substance: LOSARTAN
  7. ACTEMRA [Suspect]
     Active Substance: TOCILIZUMAB
     Indication: RHEUMATOID ARTHRITIS
     Route: 042
     Dates: start: 20140514

REACTIONS (6)
  - Dysphonia [Not Recovered/Not Resolved]
  - Pyrexia [Recovering/Resolving]
  - Pharyngitis bacterial [Recovering/Resolving]
  - Influenza [Recovering/Resolving]
  - Pharyngitis [Recovering/Resolving]
  - Cough [Not Recovered/Not Resolved]
